FAERS Safety Report 11336192 (Version 1)
Quarter: 2015Q3

REPORT INFORMATION
  Report Type: Spontaneous
  Country: US (occurrence: US)
  Receive Date: 20150804
  Receipt Date: 20150804
  Transmission Date: 20151125
  Serious: No
  Sender: FDA-Public Use
  Company Number: US-AMGEN-USASP2015077865

PATIENT
  Age: 31 Year
  Sex: Female

DRUGS (1)
  1. ENBREL [Suspect]
     Active Substance: ETANERCEPT
     Indication: PSORIATIC ARTHROPATHY
     Dosage: 50 MG, QWK
     Route: 058
     Dates: start: 20150713

REACTIONS (5)
  - Injection site bruising [Unknown]
  - Pruritus [Unknown]
  - Injection site reaction [Unknown]
  - Stress at work [Unknown]
  - Psoriasis [Unknown]

NARRATIVE: CASE EVENT DATE: 201507
